FAERS Safety Report 21100969 (Version 1)
Quarter: 2022Q3

REPORT INFORMATION
  Report Type: Spontaneous
  Country: US (occurrence: US)
  Receive Date: 20220719
  Receipt Date: 20220719
  Transmission Date: 20221027
  Serious: No
  Sender: FDA-Public Use
  Company Number: US-PFIZER INC-202200966214

PATIENT
  Age: 71 Year
  Sex: Male
  Weight: 85.28 kg

DRUGS (1)
  1. PAXLOVID [Suspect]
     Active Substance: NIRMATRELVIR\RITONAVIR
     Indication: COVID-19 treatment
     Dosage: 3 DF, 2X/DAY

REACTIONS (5)
  - Ear pain [Unknown]
  - Oropharyngeal pain [Unknown]
  - Lymph node pain [Unknown]
  - Pharyngeal erythema [Unknown]
  - Fatigue [Unknown]
